FAERS Safety Report 7496593-0 (Version None)
Quarter: 2011Q2

REPORT INFORMATION
  Report Type: 
  Country: None (occurrence: None)
  Receive Date: 20110523
  Receipt Date: 20110519
  Transmission Date: 20111010
  Serious: Yes (Other)
  Sender: FDA-Public Use
  Company Number: GB-TEVA-282019ISR

PATIENT
  Age: 51 Year
  Sex: Female

DRUGS (4)
  1. SUMATRIPTAN SUCCINATE [Suspect]
     Indication: MIGRAINE
  2. CODEINE [Suspect]
     Indication: MUSCULOSKELETAL PAIN
  3. PIZOTIFEN [Suspect]
     Indication: MIGRAINE
  4. ACETAMINOPHEN [Suspect]
     Indication: MUSCULOSKELETAL PAIN

REACTIONS (3)
  - CEREBRAL VASOCONSTRICTION [None]
  - HEADACHE [None]
  - MIGRAINE [None]
